FAERS Safety Report 4854944-7 (Version None)
Quarter: 2005Q4

REPORT INFORMATION
  Report Type: 
  Country: None (occurrence: None)
  Receive Date: 20051213
  Receipt Date: 20051202
  Transmission Date: 20060501
  Serious: Yes (Hospitalization)
  Sender: FDA-Public Use
  Company Number: FRWYE199802DEC05

PATIENT
  Age: 61 Year
  Sex: Male

DRUGS (1)
  1. EFFEXOR [Suspect]
     Dosage: 1 DOSE 1X PER 1 DAY
     Route: 048
     Dates: end: 20050828

REACTIONS (3)
  - ALPHA HAEMOLYTIC STREPTOCOCCAL INFECTION [None]
  - ENDOCARDITIS BACTERIAL [None]
  - PANCYTOPENIA [None]
